FAERS Safety Report 4591724-4 (Version None)
Quarter: 2005Q1

REPORT INFORMATION
  Report Type: 
  Country: None (occurrence: None)
  Receive Date: 20050223
  Receipt Date: 20050223
  Transmission Date: 20050727
  Serious: No
  Sender: FDA-Public Use
  Company Number: None

PATIENT
  Sex: Female
  Weight: 122.9248 kg

DRUGS (7)
  1. FUROSEMIDE [Suspect]
     Indication: CARDIAC FAILURE CONGESTIVE
     Dosage: ONE PO DAILY
     Route: 048
  2. FUROSEMIDE [Suspect]
     Indication: GRAVITATIONAL OEDEMA
     Dosage: ONE PO DAILY
     Route: 048
  3. MONOPRIL [Concomitant]
  4. NITRO [Concomitant]
  5. NORVASC [Concomitant]
  6. ASPIRIN [Concomitant]
  7. PREDNISONE TAB [Concomitant]

REACTIONS (3)
  - DYSPNOEA EXACERBATED [None]
  - FLUID RETENTION [None]
  - WEIGHT INCREASED [None]
